FAERS Safety Report 10732585 (Version 1)
Quarter: 2015Q1

REPORT INFORMATION
  Report Type: Spontaneous
  Country: KR (occurrence: None)
  Receive Date: 20150120
  Receipt Date: 20150120
  Transmission Date: 20150721
  Serious: Yes (Other)
  Sender: FDA-Public Use
  Company Number: INT_00647_2015

PATIENT
  Age: 52 Year
  Sex: Female

DRUGS (2)
  1. PACLITAXEL (PACLITAXEL) (HQ SPECIALTY) [Suspect]
     Active Substance: PACLITAXEL
     Indication: OVARIAN CANCER STAGE III
  2. CARBOPLATIN (CARBOPLATIN) [Suspect]
     Active Substance: CARBOPLATIN
     Indication: OVARIAN CANCER STAGE III

REACTIONS (9)
  - Cough [None]
  - Lymphadenopathy [None]
  - Granuloma [None]
  - Sarcoidosis [None]
  - Skin mass [None]
  - Metastases to lymph nodes [None]
  - Pulmonary hilar enlargement [None]
  - Neoplasm recurrence [None]
  - Pulmonary mass [None]
